FAERS Safety Report 19813763 (Version 4)
Quarter: 2022Q1

REPORT INFORMATION
  Report Type: Report from Study
  Country: US (occurrence: US)
  Receive Date: 20210909
  Receipt Date: 20220106
  Transmission Date: 20220423
  Serious: No
  Sender: FDA-Public Use
  Company Number: NVSC2021US202041

PATIENT
  Age: 76 Year
  Sex: Female

DRUGS (2)
  1. TABRECTA [Suspect]
     Active Substance: CAPMATINIB
     Indication: Lung neoplasm malignant
     Dosage: 400 MG, BID
     Route: 048
     Dates: start: 202104
  2. TABRECTA [Suspect]
     Active Substance: CAPMATINIB
     Indication: Lung neoplasm malignant

REACTIONS (5)
  - Ageusia [Unknown]
  - Oedema peripheral [Unknown]
  - Decreased appetite [Unknown]
  - Nausea [Unknown]
  - Dysphonia [Unknown]

NARRATIVE: CASE EVENT DATE: 20210902
